FAERS Safety Report 8811678 (Version 1)
Quarter: 2012Q4

REPORT INFORMATION
  Report Type: Spontaneous
  Country: US (occurrence: None)
  Receive Date: 20120925
  Receipt Date: 20120925
  Transmission Date: 20130627
  Serious: Yes (Life-Threatening)
  Sender: FDA-Public Use
  Company Number: None

PATIENT
  Age: 37 Year
  Sex: Male

DRUGS (1)
  1. HYDROMORPHONE [Suspect]
     Indication: PAIN MANAGEMENT
     Route: 042
     Dates: start: 20120915, end: 20120915

REACTIONS (2)
  - Cyanosis [None]
  - Unresponsive to stimuli [None]
